FAERS Safety Report 8715936 (Version 2)
Quarter: 2012Q4

REPORT INFORMATION
  Report Type: 
  Country: US (occurrence: US)
  Receive Date: 20120809
  Receipt Date: 20121001
  Transmission Date: 20130627
  Serious: Yes (Hospitalization, Other)
  Sender: FDA-Public Use
  Company Number: US-ACTELION-A-US2007-18388

PATIENT
  Age: 72 Year
  Sex: Female

DRUGS (1)
  1. TRACLEER [Suspect]
     Indication: PULMONARY ARTERIAL HYPERTENSION
     Route: 048
     Dates: start: 20050124

REACTIONS (13)
  - Radiotherapy [Unknown]
  - Heart rate increased [Unknown]
  - Bronchitis viral [Unknown]
  - Gastrointestinal haemorrhage [Unknown]
  - Breast cancer [Unknown]
  - Neoplasm malignant [Unknown]
  - Skin cancer [Unknown]
  - Basal cell carcinoma [Unknown]
  - Cardiac ablation [Unknown]
  - Cardioversion [Unknown]
  - Skin lesion excision [Unknown]
  - Colonoscopy [Unknown]
  - Fatigue [Unknown]
